FAERS Safety Report 19958283 (Version 1)
Quarter: 2021Q4

REPORT INFORMATION
  Report Type: Spontaneous
  Country: DE (occurrence: DE)
  Receive Date: 20211015
  Receipt Date: 20211015
  Transmission Date: 20220303
  Serious: Yes (Other)
  Sender: FDA-Public Use
  Company Number: DE-TEVA-2021-DE-1964574

PATIENT
  Age: 41 Year
  Sex: Female

DRUGS (7)
  1. LEVETIRACETAM [Interacting]
     Active Substance: LEVETIRACETAM
     Indication: Epilepsy
     Dosage: 2000 MILLIGRAM DAILY; 1-0-1
     Route: 048
     Dates: start: 20210930
  2. LEVETIRACETAM [Interacting]
     Active Substance: LEVETIRACETAM
     Indication: Loss of consciousness
     Dosage: 1000 MILLIGRAM DAILY; PATIENT HALVED THE DOSE AFTER 3 DAYS ON HER OWN AUTHORITY (HAS BEEN TAKING 1/2
     Route: 048
     Dates: start: 202110
  3. LAMOTRIGINE [Interacting]
     Active Substance: LAMOTRIGINE
     Dosage: STARTED SIMULTANEOUSLY WITH LEVETIRACETAM
     Dates: start: 20210930
  4. Quetiapin 50mg [Concomitant]
  5. MIRTAZAPINE [Concomitant]
     Active Substance: MIRTAZAPINE
  6. PANTOPRAZOLE SODIUM [Concomitant]
     Active Substance: PANTOPRAZOLE SODIUM
  7. ESCITALOPRAM [Concomitant]
     Active Substance: ESCITALOPRAM OXALATE

REACTIONS (18)
  - Hallucination [Not Recovered/Not Resolved]
  - Feeling abnormal [Not Recovered/Not Resolved]
  - Headache [Not Recovered/Not Resolved]
  - Bradyphrenia [Not Recovered/Not Resolved]
  - Feeling drunk [Not Recovered/Not Resolved]
  - Balance disorder [Not Recovered/Not Resolved]
  - Nausea [Not Recovered/Not Resolved]
  - Peripheral swelling [Not Recovered/Not Resolved]
  - Swelling face [Not Recovered/Not Resolved]
  - Myalgia [Not Recovered/Not Resolved]
  - Speech disorder [Not Recovered/Not Resolved]
  - General physical health deterioration [Not Recovered/Not Resolved]
  - Peripheral swelling [Not Recovered/Not Resolved]
  - Bone pain [Not Recovered/Not Resolved]
  - Facial pain [Not Recovered/Not Resolved]
  - Cystitis [Not Recovered/Not Resolved]
  - Urine output decreased [Not Recovered/Not Resolved]
  - Drug interaction [Unknown]

NARRATIVE: CASE EVENT DATE: 20210901
